FAERS Safety Report 13909026 (Version 1)
Quarter: 2017Q3

REPORT INFORMATION
  Report Type: Spontaneous
  Country: FR (occurrence: FR)
  Receive Date: 20170828
  Receipt Date: 20170828
  Transmission Date: 20171127
  Serious: Yes (Death)
  Sender: FDA-Public Use
  Company Number: FR-ROCHE-1982925

PATIENT
  Age: 9 Month
  Sex: Male
  Weight: 8.7 kg

DRUGS (6)
  1. TAZOBACTAM/PIPERACILLIN [Suspect]
     Active Substance: PIPERACILLIN SODIUM\TAZOBACTAM SODIUM
     Indication: SEPSIS
     Route: 041
     Dates: start: 20170616
  2. FASTURTEC [Suspect]
     Active Substance: RASBURICASE
     Indication: TUMOUR INVASION
     Dosage: C1 28/06 C2 01/07 C3 09/07
     Route: 041
     Dates: start: 20170628, end: 20170709
  3. ADCETRIS [Suspect]
     Active Substance: BRENTUXIMAB VEDOTIN
     Indication: EPSTEIN-BARR VIRUS ASSOCIATED LYMPHOPROLIFERATIVE DISORDER
     Dosage: C1 21/06 C2 28/06
     Route: 041
     Dates: start: 20170621, end: 20170628
  4. MABTHERA [Suspect]
     Active Substance: RITUXIMAB
     Indication: EPSTEIN-BARR VIRUS ASSOCIATED LYMPHOPROLIFERATIVE DISORDER
     Dosage: C1 16/06 C2 20/06 C3 24/06
     Route: 041
     Dates: start: 20170616, end: 20170624
  5. VANCOMYCINE [Suspect]
     Active Substance: VANCOMYCIN
     Indication: SEPSIS
     Route: 041
     Dates: start: 20170616, end: 20170630
  6. CANCIDAS [Suspect]
     Active Substance: CASPOFUNGIN ACETATE
     Indication: SEPSIS
     Route: 041
     Dates: start: 20170616

REACTIONS (4)
  - Toxic epidermal necrolysis [Fatal]
  - Bone marrow failure [Fatal]
  - Intentional product use issue [Fatal]
  - Off label use [Fatal]

NARRATIVE: CASE EVENT DATE: 20170703
